FAERS Safety Report 26124254 (Version 1)
Quarter: 2025Q4

REPORT INFORMATION
  Report Type: Spontaneous
  Country: EU (occurrence: EU)
  Receive Date: 20251205
  Receipt Date: 20251205
  Transmission Date: 20260118
  Serious: Yes (Other)
  Sender: CELLTRION
  Company Number: EU-002147023-NVSC2025SI179956

PATIENT

DRUGS (2)
  1. OMALIZUMAB [Suspect]
     Active Substance: OMALIZUMAB
     Indication: Chronic spontaneous urticaria
     Dosage: 300 MG AND 450 MG , QMO
     Route: 065
     Dates: start: 20251001
  2. CETIRIZINE [Concomitant]
     Active Substance: CETIRIZINE HYDROCHLORIDE
     Indication: Chronic spontaneous urticaria
     Dosage: 10 MG, QID (4 TABLETS PER DAY)
     Route: 065

REACTIONS (2)
  - Angioedema [Unknown]
  - Drug ineffective [Unknown]
